FAERS Safety Report 25622186 (Version 2)
Quarter: 2025Q3

REPORT INFORMATION
  Report Type: Spontaneous
  Country: US (occurrence: US)
  Receive Date: 20250730
  Receipt Date: 20250813
  Transmission Date: 20251021
  Serious: Yes (Other)
  Sender: TEVA
  Company Number: US-TEVA-VS-3355544

PATIENT
  Age: 40 Year
  Sex: Female

DRUGS (1)
  1. MESALAMINE [Suspect]
     Active Substance: MESALAMINE
     Indication: Colitis ulcerative
     Dosage: ROA: DELAYED RELEASE TABLET
     Route: 048

REACTIONS (2)
  - Colitis ulcerative [Unknown]
  - Inflammation [Unknown]
